FAERS Safety Report 15465233 (Version 1)
Quarter: 2018Q4

REPORT INFORMATION
  Report Type: Report from Study
  Country: US (occurrence: US)
  Receive Date: 20181004
  Receipt Date: 20181004
  Transmission Date: 20190204
  Serious: Yes (Hospitalization)
  Sender: FDA-Public Use
  Company Number: US-PFIZER INC-2018385156

PATIENT
  Age: 56 Year
  Sex: Female
  Weight: 40.4 kg

DRUGS (20)
  1. NAPROXEN SODIUM. [Concomitant]
     Active Substance: NAPROXEN SODIUM
     Indication: HEADACHE
     Dosage: 375 MG, PRN
     Route: 048
     Dates: start: 20180502
  2. ZOFRAN [ONDANSETRON] [Concomitant]
     Indication: NAUSEA
     Dosage: 4 MG, PRN
     Route: 048
     Dates: start: 20170123
  3. OXYCODONE [Concomitant]
     Active Substance: OXYCODONE
     Dosage: 5 MG, PRN (2/DAY), DECREASED DOSE / 2/DAY VS. 3/DAY
     Route: 048
     Dates: start: 20180828
  4. PF-05212384 [Suspect]
     Active Substance: GEDATOLISIB
     Indication: LUNG ADENOCARCINOMA
     Dosage: 110 MG, 30 MINUTES, ONCE A WEEK
     Route: 042
     Dates: start: 20180719, end: 20180913
  5. PAXIL [PAROXETINE HYDROCHLORIDE] [Concomitant]
     Indication: DEPRESSION
     Dosage: 20 MG, Q1/DAY
     Route: 048
     Dates: start: 20180409, end: 20180530
  6. SYNTHROID [Concomitant]
     Active Substance: LEVOTHYROXINE SODIUM
     Indication: HYPOTHYROIDISM
     Dosage: 100 MCG, Q1/DAY
     Route: 048
     Dates: start: 20180707
  7. OXY-IR [Concomitant]
     Active Substance: OXYCODONE HYDROCHLORIDE
     Indication: TUMOUR PAIN
     Dosage: 5 MG, Q3/DAY
     Route: 048
     Dates: start: 20170103, end: 20170827
  8. ATIVAN [Concomitant]
     Active Substance: LORAZEPAM
     Dosage: 1 MG, PRN WITH CHEMO
     Route: 042
     Dates: start: 20170208, end: 20170308
  9. CARBOPLATIN. [Suspect]
     Active Substance: CARBOPLATIN
     Indication: LUNG ADENOCARCINOMA
     Dosage: 450 MG (6AUC), 30 MINUTES, EVERY 3 WEEKS
     Route: 042
     Dates: start: 20180718, end: 20180829
  10. PACLITAXEL. [Suspect]
     Active Substance: PACLITAXEL
     Indication: LUNG ADENOCARCINOMA
     Dosage: 200 MG/M2, 3 HOURS, EVERY 3 WEEKS
     Route: 042
     Dates: start: 20180718, end: 20180829
  11. MS CONTIN [Concomitant]
     Active Substance: MORPHINE SULFATE
     Indication: TUMOUR PAIN
     Dosage: 30 MG, Q3/DAY
     Route: 048
     Dates: start: 20170123
  12. PAXIL [PAROXETINE HYDROCHLORIDE] [Concomitant]
     Dosage: 30 MG, Q1/DAY
     Dates: start: 20180531
  13. BENADRYL [Concomitant]
     Active Substance: DIPHENHYDRAMINE HYDROCHLORIDE
     Indication: RASH
     Dosage: 25 MG, Q2/DAY
     Route: 048
     Dates: start: 20180721
  14. BENADRYL [Concomitant]
     Active Substance: DIPHENHYDRAMINE HYDROCHLORIDE
     Dosage: 25 MG, 1X (PROVIDED SINCE SUBJECT DIDN^T TAKE AM DOSE)
     Route: 042
     Dates: start: 20180726, end: 20180726
  15. ICY HOT [MENTHOL] [Concomitant]
     Indication: BACK PAIN
     Dosage: 16 %, Q1/DAY
     Route: 061
     Dates: start: 20180705
  16. MIRALAX [Concomitant]
     Active Substance: POLYETHYLENE GLYCOL 3350
     Indication: CONSTIPATION
     Dosage: 17 G, PRN
     Route: 048
     Dates: start: 20180727
  17. ATIVAN [Concomitant]
     Active Substance: LORAZEPAM
     Indication: ANXIETY
     Dosage: 1 MG, AS NEEDED
     Route: 048
     Dates: start: 20170208
  18. FLEXERIL [CYCLOBENZAPRINE HYDROCHLORIDE] [Concomitant]
     Indication: RESTLESS LEGS SYNDROME
     Dosage: 5 MG, Q1/DAY-2DAY
     Route: 048
     Dates: start: 20180110
  19. AQUAPHOR  (PETROLATUM) [Concomitant]
     Indication: SKIN FISSURES
     Dosage: 41 %, PRN
     Route: 061
     Dates: start: 20180904
  20. CBD OIL [Concomitant]
     Active Substance: CANNABIDIOL\HERBALS
     Indication: PAIN
     Dosage: 0.5 ML, Q3-2/DAY
     Route: 048
     Dates: start: 20180707

REACTIONS (1)
  - Parotitis [Recovered/Resolved]

NARRATIVE: CASE EVENT DATE: 20180918
